FAERS Safety Report 9276691 (Version 1)
Quarter: 2013Q2

REPORT INFORMATION
  Report Type: Report from Study
  Country: TH (occurrence: TH)
  Receive Date: 20130507
  Receipt Date: 20130507
  Transmission Date: 20140414
  Serious: Yes (Death)
  Sender: FDA-Public Use
  Company Number: PHHY2013TH044218

PATIENT
  Age: 70 Year
  Sex: Male

DRUGS (1)
  1. ZOMETA [Suspect]
     Indication: METASTASES TO BONE
     Dosage: 4 MG, ONCE MONTHLY
     Route: 041

REACTIONS (5)
  - Decubitus ulcer [Fatal]
  - Infection [Fatal]
  - Prostate cancer [Fatal]
  - Gait disturbance [Unknown]
  - Pain [Unknown]
